FAERS Safety Report 5949243-6 (Version None)
Quarter: 2008Q4

REPORT INFORMATION
  Report Type: 
  Country: None (occurrence: None)
  Receive Date: 20081111
  Receipt Date: 20081105
  Transmission Date: 20090506
  Serious: Yes (Other)
  Sender: FDA-Public Use
  Company Number: US-ALLERGAN-0813053US

PATIENT
  Sex: Female

DRUGS (1)
  1. BOTOX COSMETIC [Suspect]
     Indication: SKIN WRINKLING
     Dosage: 25 UNITS, SINGLE
     Route: 030
     Dates: start: 20080311, end: 20080311

REACTIONS (5)
  - EYELID OEDEMA [None]
  - EYELID PTOSIS [None]
  - IRITIS [None]
  - ROSACEA [None]
  - SCLERITIS [None]
